FAERS Safety Report 25262984 (Version 1)
Quarter: 2025Q2

REPORT INFORMATION
  Report Type: Other
  Country: US (occurrence: US)
  Receive Date: 20250502
  Receipt Date: 20250502
  Transmission Date: 20250717
  Serious: Yes (Life-Threatening, Hospitalization, Other)
  Sender: NUVO PHARMACEUTICALS INC
  Company Number: US-Nuvo Pharmaceuticals Inc-2176042

PATIENT
  Age: 78 Year
  Sex: Male

DRUGS (1)
  1. OXYCODONE HYDROCHLORIDE [Suspect]
     Active Substance: OXYCODONE HYDROCHLORIDE
     Indication: Product used for unknown indication

REACTIONS (3)
  - Unresponsive to stimuli [Unknown]
  - Intentional overdose [Unknown]
  - Respiratory failure [Unknown]
